FAERS Safety Report 4946173-3 (Version None)
Quarter: 2006Q1

REPORT INFORMATION
  Report Type: 
  Country: None (occurrence: None)
  Receive Date: 20060118
  Receipt Date: 20050601
  Transmission Date: 20060701
  Serious: Yes (Other)
  Sender: FDA-Public Use
  Company Number: US-JNJFOC-20050501527

PATIENT
  Age: 48 Year
  Sex: Female
  Weight: 72.5755 kg

DRUGS (3)
  1. DOXIL [Suspect]
     Indication: OVARIAN CANCER
     Dosage: 90 MG, 1 IN 1 MONTH, INTRAVENOUS
     Route: 042
     Dates: start: 20050218, end: 20050318
  2. DECADRON [Concomitant]
  3. ZOFRAN [Concomitant]

REACTIONS (1)
  - PALMAR-PLANTAR ERYTHRODYSAESTHESIA SYNDROME [None]
